FAERS Safety Report 9822464 (Version 1)
Quarter: 2014Q1

REPORT INFORMATION
  Report Type: Spontaneous
  Country: US (occurrence: US)
  Receive Date: 20140116
  Receipt Date: 20140116
  Transmission Date: 20141002
  Serious: No
  Sender: FDA-Public Use
  Company Number: US-009507513-1401USA004762

PATIENT
  Age: 56 Year
  Sex: Female

DRUGS (2)
  1. DULERA [Suspect]
     Indication: ASTHMA
     Dosage: 200 MCG/5 MCG ONE PUFF, ONCE DAILY
     Route: 055
     Dates: start: 201111
  2. VENTOLIN (ALBUTEROL) [Concomitant]

REACTIONS (2)
  - Asthma [Recovering/Resolving]
  - Underdose [Unknown]
